FAERS Safety Report 7522182-5 (Version None)
Quarter: 2011Q2

REPORT INFORMATION
  Report Type: 
  Country: None (occurrence: None)
  Receive Date: 20110523
  Receipt Date: 20110331
  Transmission Date: 20111010
  Serious: Yes (Life-Threatening)
  Sender: FDA-Public Use
  Company Number: US-145176

PATIENT
  Sex: Female
  Weight: 84.369 kg

DRUGS (8)
  1. FERROUS SULFATE TAB [Concomitant]
  2. MSM [Concomitant]
  3. CALCIUM CARBONATE [Concomitant]
  4. LISINOPRIL [Concomitant]
  5. STRONTIUM [Concomitant]
  6. CENTRUM SILVER [Concomitant]
  7. WINRHO SDF LIQUID [Suspect]
     Indication: IDIOPATHIC THROMBOCYTOPENIC PURPURA
     Dosage: (21000 IU INTRAVENOUS)
     Route: 042
     Dates: start: 20110228, end: 20110228
  8. PREDNISONE [Concomitant]

REACTIONS (2)
  - BLOOD PRESSURE DECREASED [None]
  - SYNCOPE [None]
